FAERS Safety Report 5690137-1 (Version None)
Quarter: 2008Q2

REPORT INFORMATION
  Report Type: 
  Country: None (occurrence: None)
  Receive Date: 20080401
  Receipt Date: 20080325
  Transmission Date: 20081010
  Serious: Yes (Hospitalization)
  Sender: FDA-Public Use
  Company Number: PHBS2008DK03623

PATIENT
  Age: 61 Year
  Sex: Female

DRUGS (1)
  1. TRILEPTAL [Suspect]
     Indication: EPILEPSY
     Dosage: 600 MG, BID
     Dates: start: 19930601

REACTIONS (2)
  - DISSOCIATION [None]
  - SLUGGISHNESS [None]
